FAERS Safety Report 16685664 (Version 7)
Quarter: 2020Q3

REPORT INFORMATION
  Report Type: Spontaneous
  Country: US (occurrence: US)
  Receive Date: 20190809
  Receipt Date: 20200813
  Transmission Date: 20201102
  Serious: Yes (Hospitalization, Other)
  Sender: FDA-Public Use
  Company Number: US-SA-2019SA213708

PATIENT

DRUGS (2)
  1. KEVZARA [Suspect]
     Active Substance: SARILUMAB
     Dosage: 200 MG, QOW
     Route: 058
  2. KEVZARA [Suspect]
     Active Substance: SARILUMAB
     Indication: PRODUCT USED FOR UNKNOWN INDICATION
     Dosage: 200 MG, QOW
     Route: 058
     Dates: start: 201906, end: 2019

REACTIONS (10)
  - Nephrolithiasis [Not Recovered/Not Resolved]
  - Muscle disorder [Unknown]
  - Product dose omission issue [Unknown]
  - Dehydration [Unknown]
  - Pain [Not Recovered/Not Resolved]
  - Infection [Unknown]
  - Nausea [Unknown]
  - Illness [Unknown]
  - Foot amputation [Unknown]
  - Urinary tract infection [Recovered/Resolved]

NARRATIVE: CASE EVENT DATE: 2019
